FAERS Safety Report 7753432-8 (Version None)
Quarter: 2011Q3

REPORT INFORMATION
  Report Type: 
  Country: None (occurrence: None)
  Receive Date: 20110913
  Receipt Date: 20110704
  Transmission Date: 20111222
  Serious: Yes (Other)
  Sender: FDA-Public Use
  Company Number: 2011SP042402

PATIENT
  Sex: Female

DRUGS (1)
  1. GRISEOFULVIN [Suspect]
     Indication: PRODUCT USED FOR UNKNOWN INDICATION
     Dosage: PO
     Route: 048
     Dates: start: 20110601

REACTIONS (3)
  - SWELLING [None]
  - FEELING ABNORMAL [None]
  - LIVER DISORDER [None]
